FAERS Safety Report 5652029-3 (Version None)
Quarter: 2008Q1

REPORT INFORMATION
  Report Type: 
  Country: None (occurrence: None)
  Receive Date: 20080131
  Receipt Date: 20071116
  Transmission Date: 20080703
  Serious: No
  Sender: FDA-Public Use
  Company Number: US200711004736

PATIENT
  Age: 68 Year
  Sex: Female

DRUGS (6)
  1. BYETTA [Suspect]
     Indication: TYPE 2 DIABETES MELLITUS
     Dosage: SEE IMAGE
     Route: 058
     Dates: start: 20050101, end: 20060101
  2. BYETTA [Suspect]
     Indication: TYPE 2 DIABETES MELLITUS
     Dosage: SEE IMAGE
     Route: 058
     Dates: end: 20070101
  3. BYETTA [Suspect]
     Indication: TYPE 2 DIABETES MELLITUS
     Dosage: SEE IMAGE
     Route: 058
     Dates: start: 20070101, end: 20070720
  4. BYETTA [Suspect]
     Indication: TYPE 2 DIABETES MELLITUS
     Dosage: SEE IMAGE
     Route: 058
     Dates: start: 20060101
  5. HUMALOG [Concomitant]
  6. LANTUS [Concomitant]

REACTIONS (7)
  - ABDOMINAL PAIN UPPER [None]
  - DYSPEPSIA [None]
  - FLUID RETENTION [None]
  - NAUSEA [None]
  - OEDEMA PERIPHERAL [None]
  - RASH PRURITIC [None]
  - VOMITING [None]
